FAERS Safety Report 5525935-8 (Version None)
Quarter: 2007Q4

REPORT INFORMATION
  Report Type: 
  Country: None (occurrence: None)
  Receive Date: 20071126
  Receipt Date: 20071112
  Transmission Date: 20080405
  Serious: Yes (Hospitalization)
  Sender: FDA-Public Use
  Company Number: US-SANOFI-SYNTHELABO-A03200706509

PATIENT
  Sex: Male

DRUGS (3)
  1. ANTIDEPRESSANT [Concomitant]
     Indication: DEPRESSION
     Dosage: UNK
     Route: 065
  2. PLAVIX [Suspect]
     Indication: DRUG USE FOR UNKNOWN INDICATION
     Dosage: GREATER THAN 75 MG
     Route: 048
  3. PLAVIX [Suspect]
     Dosage: UNK
     Route: 065

REACTIONS (2)
  - AMNESIA [None]
  - DEPRESSION [None]
